FAERS Safety Report 17396703 (Version 1)
Quarter: 2020Q1

REPORT INFORMATION
  Report Type: Report from Study
  Country: GB (occurrence: GB)
  Receive Date: 20200210
  Receipt Date: 20200210
  Transmission Date: 20200409
  Serious: Yes (Other)
  Sender: FDA-Public Use
  Company Number: GB-PFIZER INC-2020049314

PATIENT
  Age: 70 Year
  Sex: Female

DRUGS (7)
  1. TRASTUZUMAB. [Suspect]
     Active Substance: TRASTUZUMAB
     Dosage: 441 MG, 1X/DAY
     Route: 042
     Dates: start: 20150605, end: 20150605
  2. PACLITAXEL. [Suspect]
     Active Substance: PACLITAXEL
     Dosage: 144 MG, WEEKLY
     Route: 042
     Dates: start: 20150227, end: 20150313
  3. TRASTUZUMAB. [Suspect]
     Active Substance: TRASTUZUMAB
     Indication: BREAST CANCER METASTATIC
     Dosage: 294 MG, 1X/DAY
     Route: 042
     Dates: start: 20150305, end: 20150305
  4. TRASTUZUMAB/VORHYALURONIDASE ALFA [Suspect]
     Active Substance: HYALURONIDASE (HUMAN RECOMBINANT)\TRASTUZUMAB
     Indication: BREAST CANCER METASTATIC
     Dosage: 600 MG, EVERY 3 WEEKS
     Route: 058
     Dates: start: 20150703, end: 20160229
  5. PACLITAXEL. [Suspect]
     Active Substance: PACLITAXEL
     Indication: BREAST CANCER METASTATIC
     Dosage: 132 MG, WEEKLY
     Route: 042
     Dates: start: 20150320, end: 20150515
  6. FERROUS SULPHATE [FERROUS SULFATE] [Concomitant]
     Active Substance: FERROUS SULFATE
     Indication: ANAEMIA
     Dosage: 200 MG, 1X/DAY
     Route: 048
     Dates: start: 201601, end: 20160421
  7. TRASTUZUMAB. [Suspect]
     Active Substance: TRASTUZUMAB
     Dosage: 147 MG, WEEKLY
     Route: 042
     Dates: start: 20150313, end: 20150515

REACTIONS (1)
  - Escherichia urinary tract infection [Recovered/Resolved]

NARRATIVE: CASE EVENT DATE: 20151116
